FAERS Safety Report 9132478 (Version 1)
Quarter: 2013Q1

REPORT INFORMATION
  Report Type: Report from Study
  Country: US (occurrence: US)
  Receive Date: 20130301
  Receipt Date: 20130301
  Transmission Date: 20140127
  Serious: Yes (Other)
  Sender: FDA-Public Use
  Company Number: US-ABBOTT-13P-163-1054176-00

PATIENT
  Age: 59 Year
  Sex: Male

DRUGS (6)
  1. HUMIRA [Suspect]
     Indication: RHEUMATOID ARTHRITIS
     Dates: start: 201202, end: 201211
  2. HUMIRA [Suspect]
     Dates: start: 201301
  3. FLOMAX [Concomitant]
     Indication: DYSURIA
  4. OMEPRAZOLE [Concomitant]
     Indication: GASTROOESOPHAGEAL REFLUX DISEASE
  5. CELEBREX [Concomitant]
     Indication: ARTHRITIS
  6. OXYCODONE [Concomitant]
     Indication: POSTOPERATIVE ANALGESIA

REACTIONS (5)
  - Colitis [Recovering/Resolving]
  - Urinary retention [Unknown]
  - Injection site pain [Unknown]
  - Injection site pruritus [Unknown]
  - Injection site swelling [Unknown]
